FAERS Safety Report 22993931 (Version 3)
Quarter: 2023Q4

REPORT INFORMATION
  Report Type: Spontaneous
  Country: US (occurrence: US)
  Receive Date: 20230927
  Receipt Date: 20231114
  Transmission Date: 20240109
  Serious: No
  Sender: FDA-Public Use
  Company Number: US-Calliditas-2023CAL01245

PATIENT
  Age: 40 Year
  Sex: Male

DRUGS (6)
  1. TARPEYO [Suspect]
     Active Substance: BUDESONIDE
     Indication: Haematuria
     Dosage: 16 MG (4 MG CAPSULES) ONCE DAILY
     Route: 048
     Dates: start: 20230907
  2. TELMISARTAN [Concomitant]
     Active Substance: TELMISARTAN
  3. FEBUXOSTAT [Concomitant]
     Active Substance: FEBUXOSTAT
  4. DILTIAZEM [Concomitant]
     Active Substance: DILTIAZEM
  5. CARDURA [Concomitant]
     Active Substance: DOXAZOSIN MESYLATE
  6. OMEGA-3 FATTY ACIDS [Concomitant]
     Active Substance: OMEGA-3 FATTY ACIDS

REACTIONS (4)
  - Dyspnoea [Recovering/Resolving]
  - Ageusia [Not Recovered/Not Resolved]
  - Blood pressure increased [Unknown]
  - Acne [Unknown]

NARRATIVE: CASE EVENT DATE: 20230904
